FAERS Safety Report 13768350 (Version 1)
Quarter: 2017Q3

REPORT INFORMATION
  Report Type: Spontaneous
  Country: IT (occurrence: IT)
  Receive Date: 20170719
  Receipt Date: 20170719
  Transmission Date: 20171127
  Serious: Yes (Hospitalization, Other)
  Sender: FDA-Public Use
  Company Number: IT-MYLANLABS-2017M1041644

PATIENT

DRUGS (2)
  1. ACETYLSALICYLIC ACID [Interacting]
     Active Substance: ASPIRIN
     Indication: PRODUCT USED FOR UNKNOWN INDICATION
     Dosage: 100 MG, QD
     Route: 048
  2. IBUPROFEN. [Suspect]
     Active Substance: IBUPROFEN
     Indication: THROAT IRRITATION
     Dosage: 200 MG, QD
     Route: 048

REACTIONS (4)
  - Treatment noncompliance [Recovering/Resolving]
  - Haematemesis [Recovering/Resolving]
  - Drug interaction [Recovering/Resolving]
  - Gastritis erosive [Recovering/Resolving]
